FAERS Safety Report 15316833 (Version 2)
Quarter: 2018Q3

REPORT INFORMATION
  Report Type: Spontaneous
  Country: BR (occurrence: BR)
  Receive Date: 20180824
  Receipt Date: 20180903
  Transmission Date: 20181010
  Serious: Yes (Hospitalization, Other)
  Sender: FDA-Public Use
  Company Number: PHHY2018BR079888

PATIENT
  Age: 38 Year
  Sex: Male
  Weight: 110 kg

DRUGS (6)
  1. DECADRON [Concomitant]
     Active Substance: DEXAMETHASONE
     Indication: BRAIN CANCER METASTATIC
     Dosage: 2 DF, QD
     Route: 048
     Dates: start: 200605
  2. MEMANTINE. [Concomitant]
     Active Substance: MEMANTINE
     Indication: BRAIN CANCER METASTATIC
     Dosage: UNK
     Route: 048
     Dates: start: 200605
  3. ESOMEPRAZOLE [Concomitant]
     Active Substance: ESOMEPRAZOLE
     Indication: ABDOMINAL DISCOMFORT
     Dosage: 1 DF, QD
     Route: 048
     Dates: start: 200605
  4. TEGRETOL [Suspect]
     Active Substance: CARBAMAZEPINE
     Indication: SEIZURE
     Dosage: 5 DF, QD
     Route: 048
     Dates: start: 200605
  5. HIDANTAL [Concomitant]
     Active Substance: PHENYTOIN SODIUM
     Indication: BRAIN CANCER METASTATIC
     Dosage: UNK
     Route: 048
     Dates: start: 200605
  6. TEGRETOL [Interacting]
     Active Substance: CARBAMAZEPINE
     Indication: BRAIN CANCER METASTATIC
     Dosage: UNK
     Route: 048
     Dates: start: 201802, end: 201806

REACTIONS (6)
  - Pneumonia [Not Recovered/Not Resolved]
  - Cough [Not Recovered/Not Resolved]
  - Dysphagia [Not Recovered/Not Resolved]
  - Chest discomfort [Not Recovered/Not Resolved]
  - Neoplasm malignant [Not Recovered/Not Resolved]
  - Hypothyroidism [Not Recovered/Not Resolved]

NARRATIVE: CASE EVENT DATE: 200605
